FAERS Safety Report 5337555-9 (Version None)
Quarter: 2007Q2

REPORT INFORMATION
  Report Type: 
  Country: None (occurrence: None)
  Receive Date: 20070524
  Receipt Date: 20070516
  Transmission Date: 20071010
  Serious: Yes (Other)
  Sender: FDA-Public Use
  Company Number: 2007BI010601

PATIENT
  Age: 55 Year
  Sex: Female
  Weight: 93.8946 kg

DRUGS (4)
  1. AVONEX [Suspect]
     Indication: MULTIPLE SCLEROSIS
     Dosage: 30 UG;QW;IM
     Route: 030
     Dates: start: 20060201
  2. SYNTHROID [Concomitant]
  3. LEXAPRO [Concomitant]
  4. ALEVERT [Concomitant]

REACTIONS (5)
  - CONDITION AGGRAVATED [None]
  - HEAD INJURY [None]
  - INFLUENZA LIKE ILLNESS [None]
  - MULTIPLE SCLEROSIS [None]
  - MYOCARDIAL INFARCTION [None]
